FAERS Safety Report 7130830-7 (Version None)
Quarter: 2010Q4

REPORT INFORMATION
  Report Type: 
  Country: None (occurrence: None)
  Receive Date: 20101201
  Receipt Date: 20101123
  Transmission Date: 20110411
  Serious: Yes (Other)
  Sender: FDA-Public Use
  Company Number: AU-ROCHE-743888

PATIENT
  Sex: Female

DRUGS (1)
  1. VALIUM [Suspect]
     Route: 048

REACTIONS (3)
  - DIZZINESS [None]
  - HYPOTENSION [None]
  - SUICIDAL IDEATION [None]
